FAERS Safety Report 10986941 (Version 1)
Quarter: 2015Q2

REPORT INFORMATION
  Report Type: Spontaneous
  Country: US (occurrence: None)
  Receive Date: 20150402
  Receipt Date: 20150402
  Transmission Date: 20150821
  Serious: Yes (Death)
  Sender: FDA-Public Use
  Company Number: 201503177

PATIENT
  Sex: Male

DRUGS (1)
  1. TESTIM [Suspect]
     Active Substance: TESTOSTERONE
     Indication: ERECTILE DYSFUNCTION
     Route: 062
     Dates: start: 201203, end: 20130326

REACTIONS (2)
  - Cardio-respiratory arrest [None]
  - Sexual relationship change [None]

NARRATIVE: CASE EVENT DATE: 20130326
